FAERS Safety Report 10766074 (Version 1)
Quarter: 2015Q1

REPORT INFORMATION
  Report Type: Spontaneous
  Country: GB (occurrence: GB)
  Receive Date: 20150205
  Receipt Date: 20150205
  Transmission Date: 20150721
  Serious: Yes (Disabling, Congenital Anomaly, Other)
  Sender: FDA-Public Use
  Company Number: GB-ABBVIE-15P-167-1342118-00

PATIENT

DRUGS (1)
  1. EPILIM [Suspect]
     Active Substance: VALPROATE SODIUM
     Indication: MATERNAL EXPOSURE TIMING UNSPECIFIED
     Route: 064

REACTIONS (8)
  - Anaemia [Unknown]
  - Foetal anticonvulsant syndrome [Unknown]
  - Congenital eye disorder [Unknown]
  - Menorrhagia [Unknown]
  - Speech disorder developmental [Unknown]
  - Eczema [Unknown]
  - Foetal exposure during pregnancy [Unknown]
  - Developmental delay [Unknown]
